FAERS Safety Report 8304529 (Version 2)
Quarter: 2021Q4

REPORT INFORMATION
  Report Type: Spontaneous
  Country: CA (occurrence: CA)
  Receive Date: 20111221
  Receipt Date: 20211124
  Transmission Date: 20220304
  Serious: Yes (Other)
  Sender: FDA-Public Use
  Company Number: CA-PFIZER INC-2011306499

PATIENT
  Age: 64 Year
  Sex: Female

DRUGS (11)
  1. PHENYTOIN [Interacting]
     Active Substance: PHENYTOIN
     Indication: Epilepsy
     Dosage: 200 MG, 3X/DAY
     Route: 048
  2. FLUOROURACIL [Interacting]
     Active Substance: FLUOROURACIL
     Indication: Chemotherapy
     Dosage: UNK
  3. FLUOROURACIL [Interacting]
     Active Substance: FLUOROURACIL
     Indication: Colorectal cancer metastatic
  4. LEUCOVORIN [Interacting]
     Active Substance: LEUCOVORIN
     Indication: Chemotherapy
     Dosage: UNK
  5. LEUCOVORIN [Interacting]
     Active Substance: LEUCOVORIN
     Indication: Colorectal cancer metastatic
  6. IRINOTECAN HYDROCHLORIDE [Interacting]
     Active Substance: IRINOTECAN HYDROCHLORIDE
     Indication: Colorectal cancer metastatic
     Dosage: UNK
  7. IRINOTECAN HYDROCHLORIDE [Interacting]
     Active Substance: IRINOTECAN HYDROCHLORIDE
     Indication: Chemotherapy
  8. VENLAFAXINE [Concomitant]
     Active Substance: VENLAFAXINE HYDROCHLORIDE
     Dosage: 112.5 MG, 1X/DAY
     Route: 048
  9. DOCUSATE SODIUM [Concomitant]
     Active Substance: DOCUSATE SODIUM
     Dosage: 100 MG, 2X/DAY
     Route: 048
  10. ETIDRONATE DISODIUM [Concomitant]
     Active Substance: ETIDRONATE DISODIUM
     Dosage: 1 TABLET DAILY
     Route: 048
  11. CALCIUM CARBONATE [Concomitant]
     Active Substance: CALCIUM CARBONATE
     Dosage: 1 TABLET DAILY
     Route: 048

REACTIONS (7)
  - Drug interaction [Recovered/Resolved]
  - Toxicity to various agents [Recovered/Resolved]
  - Anticonvulsant drug level increased [Recovered/Resolved]
  - Hyperreflexia [Recovered/Resolved]
  - Ataxia [Recovered/Resolved]
  - Dizziness [Recovered/Resolved]
  - Somnolence [Recovered/Resolved]
